FAERS Safety Report 13097853 (Version 3)
Quarter: 2017Q1

REPORT INFORMATION
  Report Type: Spontaneous
  Country: GB (occurrence: GB)
  Receive Date: 20170109
  Receipt Date: 20170123
  Transmission Date: 20170428
  Serious: Yes (Hospitalization, Disabling)
  Sender: FDA-Public Use
  Company Number: GB-GLAXOSMITHKLINE-GB2017GSK001511

PATIENT
  Age: 77 Year
  Sex: Male

DRUGS (5)
  1. NIQUITIN [Suspect]
     Active Substance: NICOTINE
     Indication: SMOKING CESSATION THERAPY
     Dosage: 21 MG, UNK
     Route: 003
     Dates: start: 20160907
  2. PERINDOPRIL [Concomitant]
     Active Substance: PERINDOPRIL
     Dosage: 2 MG, QD
  3. NIQUITIN [Suspect]
     Active Substance: NICOTINE
     Dosage: 14 MG, UNK
     Route: 003
  4. WARFARIN [Concomitant]
     Active Substance: WARFARIN
  5. DIGOXIN. [Concomitant]
     Active Substance: DIGOXIN
     Dosage: 250 UG, QD IN THE MORNING

REACTIONS (16)
  - Pharyngeal erythema [Not Recovered/Not Resolved]
  - Myositis [Not Recovered/Not Resolved]
  - Depression [Unknown]
  - Oral mucosal blistering [Not Recovered/Not Resolved]
  - Rash [Recovering/Resolving]
  - Swelling face [Recovering/Resolving]
  - Rash generalised [Recovering/Resolving]
  - Peripheral swelling [Recovering/Resolving]
  - Feeding disorder [Not Recovered/Not Resolved]
  - Pain [Not Recovered/Not Resolved]
  - Application site burn [Recovering/Resolving]
  - Asthenia [Not Recovered/Not Resolved]
  - Erythema [Recovering/Resolving]
  - Peripheral coldness [Not Recovered/Not Resolved]
  - Skin fissures [Not Recovered/Not Resolved]
  - Throat irritation [Not Recovered/Not Resolved]
